FAERS Safety Report 5881111-0 (Version None)
Quarter: 2008Q3

REPORT INFORMATION
  Report Type: 
  Country: None (occurrence: None)
  Receive Date: 20080912
  Receipt Date: 20080618
  Transmission Date: 20090109
  Serious: No
  Sender: FDA-Public Use
  Company Number: US-ABBOTT-08P-163-0458577-00

PATIENT
  Sex: Male
  Weight: 72.64 kg

DRUGS (5)
  1. HUMIRA [Suspect]
     Indication: RHEUMATOID ARTHRITIS
     Route: 058
     Dates: end: 20080301
  2. SALSALATE [Concomitant]
     Indication: RHEUMATOID ARTHRITIS
     Dosage: 750MG IN AMAND 325 MG IN PM
     Route: 048
     Dates: start: 20060101
  3. PREDNISONE TAB [Concomitant]
     Indication: RHEUMATOID ARTHRITIS
     Dosage: 5MG IN AM AND 0.5 MG IN PM
     Route: 048
  4. HYDROXYCHLOROUN [Concomitant]
     Indication: RHEUMATOID ARTHRITIS
     Route: 048
  5. METHOTREXATE [Concomitant]
     Indication: RHEUMATOID ARTHRITIS
     Dosage: EIGHT TABS A WEEK
     Route: 048

REACTIONS (2)
  - INFECTION [None]
  - JOINT SWELLING [None]
